FAERS Safety Report 17308426 (Version 1)
Quarter: 2020Q1

REPORT INFORMATION
  Report Type: Spontaneous
  Country: US (occurrence: US)
  Receive Date: 20200123
  Receipt Date: 20200123
  Transmission Date: 20200409
  Serious: Yes (Hospitalization, Other)
  Sender: FDA-Public Use
  Company Number: US-TEVA-2020-US-1170451

PATIENT
  Age: 69 Year
  Sex: Male

DRUGS (1)
  1. CARVEDILOL TEVA [Suspect]
     Active Substance: CARVEDILOL
     Indication: HYPERTENSION
     Route: 065

REACTIONS (2)
  - Blood pressure increased [Unknown]
  - Product quality issue [Unknown]

NARRATIVE: CASE EVENT DATE: 202001
